FAERS Safety Report 9388095 (Version 2)
Quarter: 2013Q3

REPORT INFORMATION
  Report Type: Spontaneous
  Country: NL (occurrence: NL)
  Receive Date: 20130708
  Receipt Date: 20130822
  Transmission Date: 20140515
  Serious: Yes (Death)
  Sender: FDA-Public Use
  Company Number: NL-BAYER-2013-079658

PATIENT
  Age: 30 Year
  Sex: Female
  Weight: 70 kg

DRUGS (4)
  1. NIFEDIPINE [Suspect]
     Indication: PERIPHERAL COLDNESS
     Dosage: UNK UNK, BID
     Dates: start: 20100409, end: 201306
  2. VENLAFAXINE [Suspect]
     Indication: DEPRESSION
     Dosage: 1 DF, QD
     Dates: start: 20130425
  3. CALCICHEW [Suspect]
     Indication: PROPHYLAXIS
     Dosage: 1 DF, QD
     Dates: start: 20110831
  4. ESTRADIOL [Concomitant]
     Dosage: 1 TIMES PER 1 DAY
     Dates: start: 20130205

REACTIONS (1)
  - Cardiac death [Fatal]
